FAERS Safety Report 20183411 (Version 1)
Quarter: 2021Q4

REPORT INFORMATION
  Report Type: Spontaneous
  Country: US (occurrence: US)
  Receive Date: 20211214
  Receipt Date: 20211214
  Transmission Date: 20220304
  Serious: Yes (Death, Hospitalization, Other)
  Sender: FDA-Public Use
  Company Number: US-ABBVIE-21K-163-3770757-00

PATIENT
  Sex: Male
  Weight: 86.260 kg

DRUGS (3)
  1. IMBRUVICA [Suspect]
     Active Substance: IBRUTINIB
     Indication: Waldenstrom^s macroglobulinaemia
     Route: 048
     Dates: start: 2017
  2. IMBRUVICA [Suspect]
     Active Substance: IBRUTINIB
     Route: 048
  3. MELATONIN [Concomitant]
     Active Substance: MELATONIN
     Indication: Product used for unknown indication

REACTIONS (4)
  - Waldenstrom^s macroglobulinaemia [Fatal]
  - Pneumonia [Recovered/Resolved]
  - Chronic lymphocytic leukaemia [Unknown]
  - Weight decreased [Unknown]

NARRATIVE: CASE EVENT DATE: 20170101
